FAERS Safety Report 8731376 (Version 2)
Quarter: 2012Q4

REPORT INFORMATION
  Report Type: Report from Study
  Country: FR (occurrence: FR)
  Receive Date: 20120820
  Receipt Date: 20120911
  Transmission Date: 20130627
  Serious: Yes (Other)
  Sender: FDA-Public Use
  Company Number: FR-MPIJNJ-2012-03752

PATIENT

DRUGS (6)
  1. VELCADE [Suspect]
     Indication: MANTLE CELL LYMPHOMA
     Dosage: 2.2 mg, UNK
     Route: 058
     Dates: start: 20120221, end: 20120418
  2. LEVACT [Suspect]
     Indication: MANTLE CELL LYMPHOMA
     Dosage: 156 mg, UNK
     Route: 042
     Dates: start: 20120221, end: 20120418
  3. MABTHERA [Suspect]
     Indication: MANTLE CELL LYMPHOMA
     Dosage: 650 mg, UNK
     Route: 042
     Dates: start: 20120221, end: 20120417
  4. DEXAMETHASONE [Suspect]
     Indication: MANTLE CELL LYMPHOMA
     Dosage: 40 mg, UNK
     Route: 042
     Dates: start: 20120222, end: 20120418
  5. BACTRIM [Concomitant]
     Dosage: UNK
     Dates: start: 20120221
  6. ZELITREX                           /01269701/ [Concomitant]
     Dosage: UNK
     Dates: start: 20120221

REACTIONS (2)
  - Herpes zoster [Not Recovered/Not Resolved]
  - Musculoskeletal chest pain [Not Recovered/Not Resolved]
